FAERS Safety Report 16921711 (Version 1)
Quarter: 2019Q4

REPORT INFORMATION
  Report Type: Spontaneous
  Country: CH (occurrence: CH)
  Receive Date: 20191015
  Receipt Date: 20191015
  Transmission Date: 20200122
  Serious: Yes (Other)
  Sender: FDA-Public Use
  Company Number: NVSC2019CH000820

PATIENT
  Age: 50 Year
  Sex: Male

DRUGS (4)
  1. ETANERCEPT [Suspect]
     Active Substance: ETANERCEPT
     Indication: SPONDYLITIS
     Dosage: UNK UKN, UNKNOWN
     Route: 065
  2. ETANERCEPT [Suspect]
     Active Substance: ETANERCEPT
     Indication: ABDOMINAL PAIN
  3. PREDNISONE. [Suspect]
     Active Substance: PREDNISONE
     Indication: ABDOMINAL PAIN
  4. PREDNISONE. [Suspect]
     Active Substance: PREDNISONE
     Indication: SPONDYLITIS
     Dosage: UNK UKN, UNKNOWN
     Route: 065

REACTIONS (1)
  - Drug ineffective [Unknown]
